FAERS Safety Report 4700442-0 (Version None)
Quarter: 2005Q2

REPORT INFORMATION
  Report Type: 
  Country: None (occurrence: None)
  Receive Date: 20050627
  Receipt Date: 20050615
  Transmission Date: 20051028
  Serious: Yes (Death)
  Sender: FDA-Public Use
  Company Number: US-BRISTOL-MYERS SQUIBB COMPANY-13005582

PATIENT
  Sex: Male

DRUGS (2)
  1. COUMADIN [Suspect]
  2. PRAVACHOL [Concomitant]

REACTIONS (1)
  - DEATH [None]
